FAERS Safety Report 7736904-1 (Version None)
Quarter: 2011Q3

REPORT INFORMATION
  Report Type: 
  Country: None (occurrence: None)
  Receive Date: 20110908
  Receipt Date: 20110830
  Transmission Date: 20111222
  Serious: Yes (Other)
  Sender: FDA-Public Use
  Company Number: US-US-EMD SERONO, INC.-7080435

PATIENT
  Sex: Female

DRUGS (6)
  1. CELEXA [Concomitant]
     Indication: PRODUCT USED FOR UNKNOWN INDICATION
  2. UNSPECIFIED MEDICATION [Concomitant]
     Indication: BLOOD PRESSURE
     Dates: end: 20100101
  3. TYLENOL-500 [Concomitant]
     Indication: PREMEDICATION
  4. WELLBUTRIN [Concomitant]
     Indication: PRODUCT USED FOR UNKNOWN INDICATION
  5. REBIF [Suspect]
     Indication: MULTIPLE SCLEROSIS
     Route: 058
     Dates: start: 20101217
  6. PAXIL [Concomitant]
     Indication: PRODUCT USED FOR UNKNOWN INDICATION

REACTIONS (7)
  - MULTIPLE SCLEROSIS [None]
  - INJECTION SITE ERYTHEMA [None]
  - BLOOD PRESSURE INCREASED [None]
  - URINARY TRACT INFECTION [None]
  - WEIGHT DECREASED [None]
  - ANGER [None]
  - INJECTION SITE PAIN [None]
